FAERS Safety Report 15222856 (Version 2)
Quarter: 2018Q3

REPORT INFORMATION
  Report Type: Spontaneous
  Country: DE (occurrence: DE)
  Receive Date: 20180731
  Receipt Date: 20180814
  Transmission Date: 20181010
  Serious: Yes (Hospitalization)
  Sender: FDA-Public Use
  Company Number: DE-MYLANLABS-2018M1055674

PATIENT
  Age: 76 Year
  Sex: Female

DRUGS (8)
  1. VITAMIN B1                         /00056102/ [Concomitant]
     Active Substance: THIAMINE HYDROCHLORIDE
     Indication: PRODUCT USED FOR UNKNOWN INDICATION
     Dosage: 100 MG, 1?0?0?0
     Route: 030
  2. CYANOCOBALAMIN. [Concomitant]
     Active Substance: CYANOCOBALAMIN
     Indication: PRODUCT USED FOR UNKNOWN INDICATION
     Dosage: NK 1XWEEK, 1?0?0?0,
     Route: 030
  3. SPIRONOLACTON [Suspect]
     Active Substance: SPIRONOLACTONE
     Indication: PRODUCT USED FOR UNKNOWN INDICATION
     Dosage: 100 MG, ONCE
  4. MIRTAZAPINE. [Suspect]
     Active Substance: MIRTAZAPINE
     Indication: PRODUCT USED FOR UNKNOWN INDICATION
     Dosage: 15 MG, ONCE
  5. PANTOPRAZOL                        /01263201/ [Concomitant]
     Active Substance: PANTOPRAZOLE
     Indication: PRODUCT USED FOR UNKNOWN INDICATION
     Dosage: 20 MG, 1?0?0?0
  6. TORASEMIDE [Suspect]
     Active Substance: TORSEMIDE
     Indication: PRODUCT USED FOR UNKNOWN INDICATION
     Dosage: 10 MG, QD,0.5?0?0?0
  7. NEUROTRAT S [Concomitant]
     Active Substance: PYRIDOXINE\THIAMINE
     Indication: PRODUCT USED FOR UNKNOWN INDICATION
     Dosage: 100|100 MG, 1?0?0?0
  8. FOLSAN [Concomitant]
     Active Substance: FOLIC ACID
     Indication: PRODUCT USED FOR UNKNOWN INDICATION
     Dosage: 5 MG, 1?0?0?0

REACTIONS (4)
  - General physical health deterioration [Unknown]
  - Confusional state [Unknown]
  - Pyrexia [Unknown]
  - Dehydration [Unknown]
